FAERS Safety Report 7622374-0 (Version None)
Quarter: 2011Q3

REPORT INFORMATION
  Report Type: 
  Country: None (occurrence: None)
  Receive Date: 20110715
  Receipt Date: 20110715
  Transmission Date: 20111222
  Serious: Yes (Other)
  Sender: FDA-Public Use
  Company Number: None

PATIENT

DRUGS (2)
  1. DIVALPROEX SODIUM [Suspect]
     Indication: AGGRESSION
     Dosage: 1000MG BID PO
     Route: 048
     Dates: start: 20080101
  2. DIVALPROEX SODIUM [Suspect]
     Indication: BIPOLAR DISORDER
     Dosage: 1000MG BID PO
     Route: 048
     Dates: start: 20080101

REACTIONS (4)
  - AGITATION [None]
  - AGGRESSION [None]
  - PRODUCT SUBSTITUTION ISSUE [None]
  - CONDITION AGGRAVATED [None]
